FAERS Safety Report 5622208-X (Version None)
Quarter: 2008Q1

REPORT INFORMATION
  Report Type: 
  Country: None (occurrence: None)
  Receive Date: 20080211
  Receipt Date: 20080201
  Transmission Date: 20080703
  Serious: Yes (Other)
  Sender: FDA-Public Use
  Company Number: US-ASTRAZENECA-2006UW12253

PATIENT
  Age: 16568 Day
  Sex: Female
  Weight: 87.3 kg

DRUGS (5)
  1. SEROQUEL [Suspect]
     Indication: SCHIZOPHRENIA
     Dosage: 200 TO 900 MG
     Route: 048
     Dates: start: 20000801, end: 20070801
  2. SEROQUEL [Suspect]
     Indication: DEPRESSION
     Dosage: 200 TO 900 MG
     Route: 048
     Dates: start: 20000801, end: 20070801
  3. GEODON [Concomitant]
     Dates: start: 20020101
  4. RISPERDAL [Concomitant]
     Dates: start: 19950101, end: 19960101
  5. ZYPREXA [Concomitant]
     Dates: start: 19980101, end: 20040101

REACTIONS (4)
  - BLOOD CHOLESTEROL INCREASED [None]
  - BLOOD TRIGLYCERIDES INCREASED [None]
  - GALLBLADDER DISORDER [None]
  - PANCREATITIS [None]
